FAERS Safety Report 13373877 (Version 2)
Quarter: 2017Q2

REPORT INFORMATION
  Report Type: Spontaneous
  Country: US (occurrence: US)
  Receive Date: 20170327
  Receipt Date: 20170508
  Transmission Date: 20170830
  Serious: No
  Sender: FDA-Public Use
  Company Number: US-PFIZER INC-2017130405

PATIENT
  Sex: Female

DRUGS (1)
  1. XELJANZ [Suspect]
     Active Substance: TOFACITINIB CITRATE
     Dosage: 5 MG, UNK
     Dates: start: 20161101

REACTIONS (4)
  - Bone swelling [Unknown]
  - Rotator cuff syndrome [Unknown]
  - Arthralgia [Unknown]
  - Musculoskeletal pain [Unknown]
